FAERS Safety Report 9961697 (Version 1)
Quarter: 2014Q1

REPORT INFORMATION
  Report Type: Spontaneous
  Country: US (occurrence: None)
  Receive Date: 20140304
  Receipt Date: 20140304
  Transmission Date: 20141002
  Serious: Yes (Hospitalization)
  Sender: FDA-Public Use
  Company Number: None

PATIENT
  Age: 29 Year
  Sex: Male
  Weight: 95.9 kg

DRUGS (3)
  1. TRAMADOL [Suspect]
     Indication: PAIN
     Dosage: 1-2 TAB QID PO
     Route: 048
     Dates: start: 20130113, end: 20130516
  2. MIRTAZAPINE [Suspect]
     Indication: DEPRESSION
     Route: 048
     Dates: start: 20121206
  3. MIRTAZAPINE [Suspect]
     Indication: POST-TRAUMATIC STRESS DISORDER
     Route: 048
     Dates: start: 20121206

REACTIONS (3)
  - Grand mal convulsion [None]
  - Fall [None]
  - Face injury [None]
